FAERS Safety Report 24959614 (Version 1)
Quarter: 2025Q1

REPORT INFORMATION
  Report Type: Spontaneous
  Country: US (occurrence: US)
  Receive Date: 20250212
  Receipt Date: 20250212
  Transmission Date: 20250409
  Serious: Yes (Hospitalization, Other)
  Sender: BAYER HEALTHCARE PHARMACEUTICALS INC.
  Company Number: US-BAYER-2025A016438

PATIENT
  Age: 25 Year
  Sex: Female

DRUGS (1)
  1. YAZ [Suspect]
     Active Substance: DROSPIRENONE\ETHINYL ESTRADIOL
     Indication: Premenstrual dysphoric disorder
     Route: 048
     Dates: start: 20240805, end: 20241024

REACTIONS (5)
  - Portal vein thrombosis [Recovering/Resolving]
  - Abdominal pain [Recovering/Resolving]
  - Pulmonary congestion [None]
  - Pelvic fluid collection [None]
  - Omental oedema [None]

NARRATIVE: CASE EVENT DATE: 20241022
